FAERS Safety Report 7508653-6 (Version None)
Quarter: 2011Q2

REPORT INFORMATION
  Report Type: 
  Country: None (occurrence: None)
  Receive Date: 20110527
  Receipt Date: 20100417
  Transmission Date: 20111010
  Serious: No
  Sender: FDA-Public Use
  Company Number: A0856470A

PATIENT
  Sex: Male

DRUGS (1)
  1. VENTOLIN [Suspect]
     Route: 055

REACTIONS (3)
  - PRODUCT QUALITY ISSUE [None]
  - WHEEZING [None]
  - COUGH [None]
